FAERS Safety Report 12408565 (Version 1)
Quarter: 2016Q2

REPORT INFORMATION
  Report Type: Spontaneous
  Country: US (occurrence: US)
  Receive Date: 20160526
  Receipt Date: 20160526
  Transmission Date: 20160815
  Serious: No
  Sender: FDA-Public Use
  Company Number: US-LOREAL USA PRODUCTS, INC.-2015LOR00008

PATIENT
  Sex: Female

DRUGS (1)
  1. ANTHELIOS 40 [Suspect]
     Active Substance: AVOBENZONE\ECAMSULE\OCTOCRYLENE

REACTIONS (2)
  - Sunburn [Unknown]
  - Drug ineffective [Not Recovered/Not Resolved]
